FAERS Safety Report 9555975 (Version 3)
Quarter: 2018Q4

REPORT INFORMATION
  Report Type: Spontaneous
  Country: US (occurrence: US)
  Receive Date: 20130926
  Receipt Date: 20181212
  Transmission Date: 20190205
  Serious: Yes (Hospitalization, Other)
  Sender: FDA-Public Use
  Company Number: US-TEVA-434686USA

PATIENT
  Sex: Female

DRUGS (1)
  1. PARAGARD T 380A [Suspect]
     Active Substance: COPPER
     Indication: CONTRACEPTION
     Route: 015
     Dates: start: 20101221

REACTIONS (4)
  - Adverse event [Unknown]
  - Developmental delay [Unknown]
  - Maternal exposure during pregnancy [Unknown]
  - Premature baby [Unknown]
